FAERS Safety Report 14192519 (Version 1)
Quarter: 2017Q4

REPORT INFORMATION
  Report Type: Spontaneous
  Country: US (occurrence: US)
  Receive Date: 20171115
  Receipt Date: 20171115
  Transmission Date: 20180321
  Serious: Yes (Other)
  Sender: FDA-Public Use
  Company Number: US-WARNER CHILCOTT-2016-002689

PATIENT
  Age: 51 Year
  Sex: Female

DRUGS (1)
  1. LO LOESTRIN FE [Suspect]
     Active Substance: ETHINYL ESTRADIOL\NORETHINDRONE ACETATE
     Indication: MENSTRUAL DISORDER
     Dosage: 1 DF, QD
     Route: 048
     Dates: start: 201607

REACTIONS (10)
  - Fall [Unknown]
  - Joint injury [Unknown]
  - Joint swelling [Unknown]
  - Metrorrhagia [Unknown]
  - Abdominal pain [Unknown]
  - Weight increased [Unknown]
  - Hypomenorrhoea [Unknown]
  - Product use in unapproved indication [Unknown]
  - Thrombosis [Unknown]
  - Acne [Unknown]

NARRATIVE: CASE EVENT DATE: 2016
